FAERS Safety Report 7491681-7 (Version None)
Quarter: 2011Q2

REPORT INFORMATION
  Report Type: 
  Country: None (occurrence: None)
  Receive Date: 20110518
  Receipt Date: 20110518
  Transmission Date: 20111010
  Serious: Yes (Other)
  Sender: FDA-Public Use
  Company Number: None

PATIENT
  Sex: Female
  Weight: 68.0396 kg

DRUGS (5)
  1. HYDROCHLOROTHIAZIDE [Concomitant]
  2. HALDOL [Concomitant]
  3. ALBUTEROL SULFATE AUTOHALER [Concomitant]
  4. RISPERIDONE [Suspect]
     Indication: COAGULOPATHY
     Dosage: 2 MG  1-2 TIMES DAILY PO
     Route: 048
     Dates: start: 20110510, end: 20110516
  5. COGENTIN [Concomitant]

REACTIONS (2)
  - MYALGIA [None]
  - ARTHRALGIA [None]
